FAERS Safety Report 21618504 (Version 1)
Quarter: 2022Q4

REPORT INFORMATION
  Report Type: Other
  Country: None (occurrence: US)
  Receive Date: 20221119
  Receipt Date: 20221119
  Transmission Date: 20230113
  Serious: Yes (Other)
  Sender: FDA-Public Use
  Company Number: US-B.Braun Medical Inc.-2135072

PATIENT
  Age: 25 Year
  Sex: Female

DRUGS (5)
  1. MEROPENEM\SODIUM CHLORIDE [Suspect]
     Active Substance: MEROPENEM\SODIUM CHLORIDE
  2. LINEZOLID [Suspect]
     Active Substance: LINEZOLID
  3. BEDAQUILINE [Suspect]
     Active Substance: BEDAQUILINE
  4. CLOFAZIMINE [Suspect]
     Active Substance: CLOFAZIMINE
  5. AMOXICILLIN\CLAVULANIC ACID [Suspect]
     Active Substance: AMOXICILLIN\CLAVULANIC ACID

REACTIONS (1)
  - Fanconi syndrome acquired [Recovered/Resolved]
